FAERS Safety Report 11203051 (Version 3)
Quarter: 2015Q3

REPORT INFORMATION
  Report Type: Report from Study
  Country: US (occurrence: US)
  Receive Date: 20150619
  Receipt Date: 20150721
  Transmission Date: 20151125
  Serious: Yes (Hospitalization, Other)
  Sender: FDA-Public Use
  Company Number: US-GLAXOSMITHKLINE-US2015082390

PATIENT
  Age: 37 Year
  Sex: Male
  Weight: 92.99 kg

DRUGS (4)
  1. BLINDED NICOTINE [Suspect]
     Active Substance: NICOTINE
     Indication: SMOKING CESSATION THERAPY
     Dosage: DOSAGE FORM: SPRAY
     Route: 048
     Dates: start: 20150426, end: 20150620
  2. PATANOL [Concomitant]
     Active Substance: OLOPATADINE HYDROCHLORIDE
     Indication: PRODUCT USED FOR UNKNOWN INDICATION
     Dosage: DOSAGE FORM: UNSPECIFIED
     Route: 031
     Dates: start: 20150606
  3. PLACEBO [Suspect]
     Active Substance: UNSPECIFIED INGREDIENT
     Indication: SMOKING CESSATION THERAPY
     Dosage: DOSAGE FORM: SPRAY
     Route: 048
     Dates: start: 20150426, end: 20150620
  4. PLACEBO [Suspect]
     Active Substance: UNSPECIFIED INGREDIENT
     Indication: SMOKING CESSATION THERAPY
     Dosage: UNK
     Route: 048
     Dates: start: 20150426, end: 20150620

REACTIONS (1)
  - Bipolar disorder [Recovered/Resolved with Sequelae]

NARRATIVE: CASE EVENT DATE: 20150601
